FAERS Safety Report 15315528 (Version 5)
Quarter: 2020Q2

REPORT INFORMATION
  Report Type: Spontaneous
  Country: US (occurrence: US)
  Receive Date: 20180824
  Receipt Date: 20200407
  Transmission Date: 20200713
  Serious: Yes (Other)
  Sender: FDA-Public Use
  Company Number: US-PFIZER INC-2018338362

PATIENT
  Age: 60 Year
  Sex: Female
  Weight: 54 kg

DRUGS (2)
  1. LYRICA [Suspect]
     Active Substance: PREGABALIN
     Indication: PAIN
     Dosage: 100 MG, 3X/DAY
     Route: 048
  2. LYRICA [Suspect]
     Active Substance: PREGABALIN
     Indication: FIBROMYALGIA
     Dosage: 50 MG, UNK

REACTIONS (36)
  - Intentional product misuse [Unknown]
  - Memory impairment [Not Recovered/Not Resolved]
  - Swollen tongue [Unknown]
  - Headache [Unknown]
  - Coeliac disease [Unknown]
  - Swelling [Unknown]
  - Musculoskeletal pain [Unknown]
  - Neck injury [Unknown]
  - Abnormal behaviour [Unknown]
  - Attention deficit hyperactivity disorder [Unknown]
  - Mouth swelling [Unknown]
  - Feeling of body temperature change [Unknown]
  - Body temperature increased [Unknown]
  - Body height decreased [Unknown]
  - Drug ineffective [Unknown]
  - Cerebral disorder [Unknown]
  - Feeling abnormal [Unknown]
  - Spinal disorder [Unknown]
  - Panic attack [Unknown]
  - Swelling face [Unknown]
  - Sleep disorder [Unknown]
  - Pain [Unknown]
  - Joint injury [Unknown]
  - Fatigue [Unknown]
  - Intervertebral disc disorder [Unknown]
  - Drug hypersensitivity [Unknown]
  - Depression [Unknown]
  - Urine analysis abnormal [Unknown]
  - Vision blurred [Unknown]
  - Impetigo [Unknown]
  - Gingival disorder [Unknown]
  - Dyslexia [Unknown]
  - Thyroid disorder [Unknown]
  - Condition aggravated [Unknown]
  - Anxiety [Unknown]
  - Limb discomfort [Unknown]
